FAERS Safety Report 12594662 (Version 10)
Quarter: 2017Q1

REPORT INFORMATION
  Report Type: Spontaneous
  Country: US (occurrence: US)
  Receive Date: 20160726
  Receipt Date: 20170329
  Transmission Date: 20170428
  Serious: Yes (Hospitalization)
  Sender: FDA-Public Use
  Company Number: US-ACTELION-A-NJ2016-139606

PATIENT
  Age: 33 Year
  Sex: Female
  Weight: 62.13 kg

DRUGS (4)
  1. VELETRI [Suspect]
     Active Substance: EPOPROSTENOL
     Indication: PULMONARY HYPERTENSION
     Dosage: 34.3 NG/KG, PER MIN
     Route: 042
     Dates: start: 20150416
  2. LETAIRIS [Concomitant]
     Active Substance: AMBRISENTAN
  3. VELETRI [Suspect]
     Active Substance: EPOPROSTENOL
     Dosage: 39.5 NG/KG/PER MIN
     Route: 042
  4. RIOCIGUAT [Concomitant]
     Active Substance: RIOCIGUAT

REACTIONS (15)
  - Device related infection [Unknown]
  - Ascites [Unknown]
  - Clostridium difficile infection [Unknown]
  - Chest pain [Unknown]
  - Abdominal pain [Unknown]
  - Infection [Unknown]
  - Pulmonary arterial hypertension [Unknown]
  - Abdominal distension [Unknown]
  - Sepsis [Unknown]
  - Catheter site swelling [Unknown]
  - Pyrexia [Unknown]
  - Medical device change [Unknown]
  - Paracentesis [Unknown]
  - Catheter site warmth [Unknown]
  - Dyspnoea [Unknown]

NARRATIVE: CASE EVENT DATE: 20161202
